FAERS Safety Report 11729541 (Version 2)
Quarter: 2015Q4

REPORT INFORMATION
  Report Type: Report from Study
  Country: US (occurrence: US)
  Receive Date: 20151112
  Receipt Date: 20151125
  Transmission Date: 20160304
  Serious: Yes (Hospitalization)
  Sender: FDA-Public Use
  Company Number: US-JNJFOC-20151112553

PATIENT
  Sex: Male

DRUGS (12)
  1. CENTRUM SILVER [Concomitant]
     Active Substance: MINERALS\VITAMINS
  2. COUMADIN [Concomitant]
     Active Substance: WARFARIN SODIUM
  3. RISPERIDONE. [Concomitant]
     Active Substance: RISPERIDONE
  4. LUMIGAN [Concomitant]
     Active Substance: BIMATOPROST
  5. IMBRUVICA [Suspect]
     Active Substance: IBRUTINIB
     Indication: MANTLE CELL LYMPHOMA
     Route: 048
     Dates: start: 201510, end: 2015
  6. MAGNESIUM [Concomitant]
     Active Substance: MAGNESIUM
  7. POTASSIUM [Concomitant]
     Active Substance: POTASSIUM
  8. METFORMIN [Concomitant]
     Active Substance: METFORMIN HYDROCHLORIDE
  9. IRON [Concomitant]
     Active Substance: IRON
  10. SPIRONOLACTONE. [Concomitant]
     Active Substance: SPIRONOLACTONE
  11. ALPHAGAN P [Concomitant]
     Active Substance: BRIMONIDINE TARTRATE
  12. FUROSEMIDE. [Concomitant]
     Active Substance: FUROSEMIDE

REACTIONS (5)
  - Epistaxis [Unknown]
  - Hallucination [Recovering/Resolving]
  - Dyspnoea [Recovering/Resolving]
  - Adverse event [Recovering/Resolving]
  - Fatigue [Unknown]

NARRATIVE: CASE EVENT DATE: 2015
